FAERS Safety Report 19024259 (Version 8)
Quarter: 2022Q3

REPORT INFORMATION
  Report Type: Spontaneous
  Country: GB (occurrence: GB)
  Receive Date: 20210318
  Receipt Date: 20220805
  Transmission Date: 20221027
  Serious: Yes (Hospitalization, Other)
  Sender: FDA-Public Use
  Company Number: GB-MHRA-ADR 24529532

PATIENT
  Age: 43 Year
  Sex: Female

DRUGS (65)
  1. DOCETAXEL [Suspect]
     Active Substance: DOCETAXEL
     Indication: HER2 positive breast cancer
     Dosage: 148 MG, Q3W (PAIN FROM METASES)
     Route: 042
     Dates: start: 20171108, end: 20180131
  2. DOCETAXEL [Suspect]
     Active Substance: DOCETAXEL
     Indication: Breast cancer metastatic
     Dosage: 592 MG (PAIN FROM METASTASES)
     Route: 065
  3. DOCETAXEL [Suspect]
     Active Substance: DOCETAXEL
     Dosage: 592 MG
     Route: 042
  4. DOCETAXEL [Suspect]
     Active Substance: DOCETAXEL
     Dosage: (PAIN FROM METASES)
     Route: 065
  5. TRASTUZUMAB [Suspect]
     Active Substance: TRASTUZUMAB
     Indication: Breast cancer metastatic
     Dosage: 8 MG, Q3W (PAIN FROM METASES)
     Route: 042
     Dates: start: 20171108
  6. TRASTUZUMAB [Suspect]
     Active Substance: TRASTUZUMAB
     Indication: HER2 positive breast cancer
     Dosage: 8 MG, Q3W (INFUSION, SOLUTION) (PAIN FROM METASES)
     Route: 042
     Dates: start: 20171108
  7. TRASTUZUMAB [Suspect]
     Active Substance: TRASTUZUMAB
     Dosage: 8 MG, Q3W (DOSE FORM: 293)
     Route: 042
     Dates: start: 20171108
  8. TRASTUZUMAB [Suspect]
     Active Substance: TRASTUZUMAB
     Dosage: 8 MG, Q3W (INTRAVENOUS DRIP) ((PHARMACEUTICAL DOSE FORM: 293)
     Route: 050
     Dates: start: 20171108
  9. TRASTUZUMAB [Suspect]
     Active Substance: TRASTUZUMAB
     Dosage: 8 MG, Q3W (PAIN FROM METASES)
     Route: 042
     Dates: start: 20171129
  10. TRASTUZUMAB [Suspect]
     Active Substance: TRASTUZUMAB
     Dosage: 8 MG, Q3W
     Route: 042
     Dates: start: 20211015
  11. PERTUZUMAB [Suspect]
     Active Substance: PERTUZUMAB
     Indication: Breast cancer metastatic
     Dosage: 840 MG, Q3W (PAIN FROM METASES)
     Route: 042
     Dates: start: 20171108
  12. PERTUZUMAB [Suspect]
     Active Substance: PERTUZUMAB
     Indication: HER2 positive breast cancer
     Dosage: 840 MG, Q3W
     Route: 042
     Dates: start: 20171127
  13. PERTUZUMAB [Suspect]
     Active Substance: PERTUZUMAB
     Dosage: 420 MG, Q3W (840 MG EVERY 3 WEEKS (PAIN FROM METASTASES)
     Route: 042
     Dates: start: 20171129
  14. PERTUZUMAB [Suspect]
     Active Substance: PERTUZUMAB
     Dosage: 420 MG
     Route: 042
     Dates: start: 20171129
  15. PERTUZUMAB [Suspect]
     Active Substance: PERTUZUMAB
     Dosage: 840 MG, Q3W(PAIN FROM METASES)
     Route: 042
     Dates: start: 20181120
  16. PERTUZUMAB [Suspect]
     Active Substance: PERTUZUMAB
     Dosage: 840 MG, Q3W (PAIN FROM METASES)
     Route: 042
     Dates: start: 20181120
  17. PERTUZUMAB [Suspect]
     Active Substance: PERTUZUMAB
     Dosage: 840 MG(PAIN FROM METASES)
     Route: 042
     Dates: start: 20181120
  18. PERTUZUMAB [Suspect]
     Active Substance: PERTUZUMAB
     Dosage: 840 MG, Q3W
     Route: 042
     Dates: start: 20181120
  19. PERTUZUMAB [Suspect]
     Active Substance: PERTUZUMAB
     Dosage: 230 OT
     Route: 065
  20. PERTUZUMAB [Suspect]
     Active Substance: PERTUZUMAB
     Dosage: 230 (PAIN FROM METASES)
     Route: 065
  21. PERTUZUMAB [Suspect]
     Active Substance: PERTUZUMAB
     Dosage: 230 MG
     Route: 065
  22. PERTUZUMAB [Suspect]
     Active Substance: PERTUZUMAB
     Dosage: UNK MG
     Route: 065
  23. PERTUZUMAB [Suspect]
     Active Substance: PERTUZUMAB
     Dosage: (DOSE FORM: 230(PAIN FROM METASES)
     Route: 065
  24. PERTUZUMAB [Suspect]
     Active Substance: PERTUZUMAB
     Dosage: UNK (UNK, PHARMACEUTICAL DOSE FORM: 293; PAIN FROM)
     Route: 065
  25. BECLOMETHASONE DIPROPIONATE [Concomitant]
     Active Substance: BECLOMETHASONE DIPROPIONATE
     Indication: Cancer pain
     Dosage: 2 OT, QD (DOSE 2 PUFF)
     Route: 055
  26. LACTULOSE [Concomitant]
     Active Substance: LACTULOSE
     Indication: Prophylaxis
     Dosage: 10 ML, BID (0.5 DAY) (PAIN FROM METASTASES)
     Route: 048
  27. LACTULOSE [Concomitant]
     Active Substance: LACTULOSE
     Dosage: 10 ML
     Route: 065
  28. LACTULOSE [Concomitant]
     Active Substance: LACTULOSE
     Dosage: 10 ML, BID (0.5 DAY)
     Route: 048
  29. MIRTAZAPINE [Concomitant]
     Active Substance: MIRTAZAPINE
     Indication: Product used for unknown indication
     Dosage: 45 MG, QD (PAIN FROM METASTASES)
     Route: 048
  30. METFORMIN [Concomitant]
     Active Substance: METFORMIN HYDROCHLORIDE
     Indication: Product used for unknown indication
     Dosage: 1000 MG, QD
     Route: 048
  31. METFORMIN [Concomitant]
     Active Substance: METFORMIN HYDROCHLORIDE
     Dosage: 50 MG, QD
     Route: 048
  32. METFORMIN [Concomitant]
     Active Substance: METFORMIN HYDROCHLORIDE
     Dosage: 500 MG, QD (PAIN FROM METASTASES)
     Route: 048
  33. METFORMIN [Concomitant]
     Active Substance: METFORMIN HYDROCHLORIDE
     Dosage: 5 MG
     Route: 065
     Dates: start: 20181002, end: 20181002
  34. NITROFURANTOIN [Concomitant]
     Active Substance: NITROFURANTOIN
     Indication: Urinary tract infection
     Dosage: 200 MG, QD (PAIN FROM METASTASES)
     Route: 048
     Dates: start: 20181103, end: 20181109
  35. NITROFURANTOIN [Concomitant]
     Active Substance: NITROFURANTOIN
     Dosage: 50 MG
     Route: 048
     Dates: start: 20181103, end: 20181109
  36. OMEPRAZOLE [Concomitant]
     Active Substance: OMEPRAZOLE
     Indication: Product used for unknown indication
     Dosage: 40 MG, QD (PAIN FROM METASTASES)
     Route: 048
     Dates: start: 201710
  37. OXYCODONE [Concomitant]
     Active Substance: OXYCODONE
     Indication: Cancer pain
     Dosage: 110 MG, BID (0.5 DAY) (PAIN FROM METASTASES)
     Route: 048
  38. OXYCODONE [Concomitant]
     Active Substance: OXYCODONE
     Dosage: 220 MG, QD
     Route: 048
  39. QUETIAPINE [Concomitant]
     Active Substance: QUETIAPINE
     Indication: Depressed mood
     Dosage: 100 MG, QD (PAIN FROM METASTASES)
     Route: 048
     Dates: end: 2020
  40. QUETIAPINE [Concomitant]
     Active Substance: QUETIAPINE
     Dosage: 150 MG, QD (PAIN FROM METASTASES)
     Route: 048
     Dates: start: 2020
  41. RAMIPRIL [Concomitant]
     Active Substance: RAMIPRIL
     Indication: Product used for unknown indication
     Dosage: 1.25 MG, QD (PAIN FROM METASTASES)
     Route: 048
  42. RAMIPRIL [Concomitant]
     Active Substance: RAMIPRIL
     Dosage: UNK, PRN (DOSE 2 PUFF)
     Route: 055
  43. ALBUTEROL [Concomitant]
     Active Substance: ALBUTEROL
     Indication: Product used for unknown indication
     Dosage: PRN (DOSE 2 PUFF) (PAIN FROM METASTASES)
     Route: 055
  44. ALBUTEROL [Concomitant]
     Active Substance: ALBUTEROL
     Dosage: PRN (DOSE 2 PUFF)
     Route: 065
  45. SIMVASTATIN [Concomitant]
     Active Substance: SIMVASTATIN
     Indication: Product used for unknown indication
     Dosage: 40 MG,QD (PAIN FROM METASTASES)
     Route: 048
  46. SODIUM PICOSULFATE [Concomitant]
     Active Substance: SODIUM PICOSULFATE
     Indication: Constipation
     Dosage: UNK
     Route: 048
  47. SODIUM PICOSULFATE [Concomitant]
     Active Substance: SODIUM PICOSULFATE
     Dosage: DOSE 10 OTHER (10 MG IN 10 ML)
     Route: 048
  48. SODIUM PICOSULFATE [Concomitant]
     Active Substance: SODIUM PICOSULFATE
     Dosage: 10 MG, QD
     Route: 048
  49. SODIUM PICOSULFATE [Concomitant]
     Active Substance: SODIUM PICOSULFATE
     Dosage: DOSE 10 OTHER (10 MG IN 10 ML)
     Route: 048
  50. SODIUM PICOSULFATE [Concomitant]
     Active Substance: SODIUM PICOSULFATE
     Dosage: 10 MG, QD NK, QD (10 MILLIGRAM PER 10 MILLILITRE, QD)
     Route: 048
  51. SODIUM PICOSULFATE [Concomitant]
     Active Substance: SODIUM PICOSULFATE
     Dosage: UNK(DOSE 10 OTHER (10 MG IN 10 ML))
     Route: 048
  52. BECLOMETHASONE DIPROPIONATE [Concomitant]
     Active Substance: BECLOMETHASONE DIPROPIONATE
     Indication: Product used for unknown indication
     Dosage: UNK (DOSE 2 PUFF (0.5 DAY)
     Route: 055
  53. BECLOMETHASONE DIPROPIONATE [Concomitant]
     Active Substance: BECLOMETHASONE DIPROPIONATE
     Indication: Product used for unknown indication
     Dosage: 2 DF, BID (PUFF) (PAIN FROM METASTASES) (METASTATIC PAIN)
     Route: 055
  54. BECLOMETHASONE DIPROPIONATE [Concomitant]
     Active Substance: BECLOMETHASONE DIPROPIONATE
     Dosage: UNK, QD (2 OT)
     Route: 065
  55. BECLOMETHASONE DIPROPIONATE [Concomitant]
     Active Substance: BECLOMETHASONE DIPROPIONATE
     Dosage: 2 DF, QD, (2OT)
     Route: 065
  56. BECLOMETHASONE DIPROPIONATE [Concomitant]
     Active Substance: BECLOMETHASONE DIPROPIONATE
     Dosage: 4 DF, BID
     Route: 065
  57. BECLOMETHASONE DIPROPIONATE [Concomitant]
     Active Substance: BECLOMETHASONE DIPROPIONATE
     Dosage: UNK, QD (2 OT) QD (DOSE 2 PUFF)
     Route: 055
  58. BECLOMETHASONE DIPROPIONATE [Concomitant]
     Active Substance: BECLOMETHASONE DIPROPIONATE
     Dosage: UNK (PUFF, BID)
     Route: 065
  59. CALCIUM CARBONATE [Concomitant]
     Active Substance: CALCIUM CARBONATE
     Indication: Product used for unknown indication
     Dosage: 1 DF, 0.5
     Route: 048
  60. CALCIUM CARBONATE [Concomitant]
     Active Substance: CALCIUM CARBONATE
     Dosage: 1 DF, QD (PAIN FROM METASTASES)
     Route: 048
  61. CALCIUM CARBONATE [Concomitant]
     Active Substance: CALCIUM CARBONATE
     Dosage: 1 DF, BID- (PAIN FROM METASTASES)
     Route: 048
  62. CALCIUM CARBONATE [Concomitant]
     Active Substance: CALCIUM CARBONATE
     Dosage: 1 DOSAGE FORM, QD
     Route: 048
  63. CALCIUM CARBONATE [Concomitant]
     Active Substance: CALCIUM CARBONATE
     Dosage: 1 DOSAGE FORM, BID
     Route: 048
  64. CHOLECALCIFEROL [Concomitant]
     Active Substance: CHOLECALCIFEROL
     Indication: Product used for unknown indication
     Dosage: 1 DOSAGE FORM (0.5)
     Route: 048
  65. MORPHINE [Concomitant]
     Active Substance: MORPHINE
     Indication: Cancer pain
     Dosage: UNK
     Route: 065

REACTIONS (19)
  - Diarrhoea [Recovered/Resolved]
  - Vomiting [Recovered/Resolved]
  - Abdominal rigidity [Recovered/Resolved]
  - Abdominal rigidity [Recovered/Resolved]
  - Muscle spasms [Recovered/Resolved]
  - Muscle spasms [Recovered/Resolved]
  - Muscle spasms [Recovered/Resolved with Sequelae]
  - Device related infection [Recovered/Resolved]
  - Abdominal pain [Recovered/Resolved]
  - Nausea [Recovered/Resolved]
  - Off label use [Unknown]
  - Device related infection [Recovered/Resolved with Sequelae]
  - Device related infection [Recovered/Resolved]
  - Device related infection [Recovered/Resolved]
  - Muscle spasms [Recovered/Resolved]
  - Abdominal rigidity [Recovered/Resolved]
  - Muscle spasms [Recovered/Resolved with Sequelae]
  - Abdominal rigidity [Recovered/Resolved with Sequelae]
  - Vomiting [Recovered/Resolved]

NARRATIVE: CASE EVENT DATE: 20180904
